FAERS Safety Report 16021158 (Version 1)
Quarter: 2019Q1

REPORT INFORMATION
  Report Type: Report from Study
  Country: IT (occurrence: IT)
  Receive Date: 20190301
  Receipt Date: 20190301
  Transmission Date: 20190418
  Serious: Yes (Hospitalization)
  Sender: FDA-Public Use
  Company Number: IT-ACCORD-110001

PATIENT
  Age: 71 Year
  Sex: Female

DRUGS (9)
  1. FOLINA [Concomitant]
     Active Substance: FOLIC ACID
  2. ESOMEPRAZOLE. [Concomitant]
     Active Substance: ESOMEPRAZOLE MAGNESIUM
     Route: 048
  3. CAPECITABINE ACCORD [Suspect]
     Active Substance: CAPECITABINE
     Indication: BREAST CANCER
     Dates: start: 20180822, end: 20180830
  4. NAVELBINE [Suspect]
     Active Substance: VINORELBINE TARTRATE
     Indication: BREAST CANCER
     Dates: start: 20180822, end: 20180830
  5. METOCLOPRAMIDE. [Concomitant]
     Active Substance: METOCLOPRAMIDE
     Route: 048
  6. BINOCRIT [Concomitant]
     Active Substance: ERYTHROPOIETIN
     Dosage: SOLUTION FOR INJECTION IN A PRE-FILLED SYRIN
  7. ENDOXAN BAXTER [Suspect]
     Active Substance: CYCLOPHOSPHAMIDE
     Indication: BREAST CANCER
     Dates: start: 20180822, end: 20180830
  8. EXEMESTANE. [Concomitant]
     Active Substance: EXEMESTANE
  9. ROSUVASTATIN. [Concomitant]
     Active Substance: ROSUVASTATIN
     Indication: HYPERCHOLESTEROLAEMIA

REACTIONS (7)
  - Nausea [Recovering/Resolving]
  - Malaise [Recovering/Resolving]
  - Asthenia [Recovering/Resolving]
  - Dehydration [Recovering/Resolving]
  - Decreased appetite [Recovering/Resolving]
  - Haematuria [Recovering/Resolving]
  - Vomiting [Recovering/Resolving]

NARRATIVE: CASE EVENT DATE: 20180824
